FAERS Safety Report 4597412-2 (Version None)
Quarter: 2005Q1

REPORT INFORMATION
  Report Type: 
  Country: None (occurrence: None)
  Receive Date: 20050228
  Receipt Date: 20050228
  Transmission Date: 20050727
  Serious: No
  Sender: FDA-Public Use
  Company Number: None

PATIENT

DRUGS (3)
  1. NABUMETONE [Suspect]
     Indication: COMPRESSION FRACTURE
     Dosage: ONE (ONE) BID
  2. NABUMETONE [Suspect]
     Indication: OSTEOARTHRITIS
     Dosage: ONE (ONE) BID
  3. NABUMETONE [Suspect]
     Indication: SURGERY
     Dosage: ONE (ONE) BID

REACTIONS (1)
  - URTICARIA [None]
